FAERS Safety Report 23158893 (Version 2)
Quarter: 2024Q2

REPORT INFORMATION
  Report Type: Report from Study
  Country: US (occurrence: US)
  Receive Date: 20231108
  Receipt Date: 20240612
  Transmission Date: 20240716
  Serious: Yes (Other)
  Sender: FDA-Public Use
  Company Number: US-ABBVIE-5377539

PATIENT
  Age: 60 Year
  Sex: Female

DRUGS (2)
  1. HUMIRA [Suspect]
     Active Substance: ADALIMUMAB
     Indication: Psoriatic arthropathy
     Route: 058
     Dates: start: 20221112
  2. HUMIRA [Suspect]
     Active Substance: ADALIMUMAB
     Dosage: THERAPY END DATE: NOV 2022
     Route: 058
     Dates: start: 20221102

REACTIONS (4)
  - Precancerous cells present [Unknown]
  - Malaise [Not Recovered/Not Resolved]
  - COVID-19 [Unknown]
  - Visual impairment [Not Recovered/Not Resolved]

NARRATIVE: CASE EVENT DATE: 20230815
